APPROVED DRUG PRODUCT: NICORETTE
Active Ingredient: NICOTINE POLACRILEX
Strength: EQ 4MG BASE
Dosage Form/Route: TROCHE/LOZENGE;ORAL
Application: N021330 | Product #002
Applicant: HALEON US HOLDINGS LLC
Approved: Oct 31, 2002 | RLD: Yes | RS: Yes | Type: OTC